FAERS Safety Report 8862806 (Version 1)
Quarter: 2012Q4

REPORT INFORMATION
  Report Type: 
  Country: CA (occurrence: CA)
  Receive Date: 20121026
  Receipt Date: 20121026
  Transmission Date: 20130627
  Serious: Yes (Other)
  Sender: FDA-Public Use
  Company Number: PHHY2005CA007792

PATIENT
  Sex: Female

DRUGS (6)
  1. SANDOSTATIN LAR [Suspect]
     Indication: ACROMEGALY
     Dosage: 60 mg, QW4
     Dates: start: 20001201
  2. CITALOPRAM [Concomitant]
  3. ESTROGEN NOS [Concomitant]
  4. LIPITOR                                 /NET/ [Concomitant]
  5. METFORMIN HYDROCHLORIDE [Concomitant]
  6. ZOPLICONE [Concomitant]

REACTIONS (21)
  - Injection site mass [Recovered/Resolved]
  - Hyperglycaemia [Unknown]
  - Fatigue [Unknown]
  - Thirst [Unknown]
  - Blood glucose increased [Unknown]
  - Asthenia [Unknown]
  - Dizziness [Unknown]
  - Injection site reaction [Unknown]
  - Hypotension [Unknown]
  - Pain [Unknown]
  - Urinary tract infection [Unknown]
  - Neck pain [Unknown]
  - Musculoskeletal pain [Unknown]
  - Back pain [Unknown]
  - Tremor [Unknown]
  - Arthralgia [Unknown]
  - Headache [Unknown]
  - Hunger [Unknown]
  - Diarrhoea [Unknown]
  - Hypoglycaemia [Unknown]
  - Blood glucose decreased [Unknown]
